FAERS Safety Report 4466843-3 (Version None)
Quarter: 2004Q4

REPORT INFORMATION
  Report Type: 
  Country: None (occurrence: None)
  Receive Date: 20041001
  Receipt Date: 20040920
  Transmission Date: 20050328
  Serious: Yes (Hospitalization)
  Sender: FDA-Public Use
  Company Number: 200704

PATIENT
  Age: 42 Year
  Sex: Male
  Weight: 137.4399 kg

DRUGS (2)
  1. AVONEX [Suspect]
     Indication: MULTIPLE SCLEROSIS
     Dosage: 30 MCG QW; IM
     Route: 030
     Dates: start: 20030101, end: 20040101
  2. AVONEX [Suspect]
     Indication: MULTIPLE SCLEROSIS
     Dosage: 30 MCG QW; IM
     Route: 030
     Dates: start: 20040101

REACTIONS (4)
  - PYELONEPHRITIS [None]
  - PYREXIA [None]
  - URINARY INCONTINENCE [None]
  - URINARY TRACT INFECTION [None]
